FAERS Safety Report 5363712-1 (Version None)
Quarter: 2007Q2

REPORT INFORMATION
  Report Type: 
  Country: None (occurrence: None)
  Receive Date: 20070620
  Receipt Date: 20070611
  Transmission Date: 20071010
  Serious: Yes (Hospitalization, Other)
  Sender: FDA-Public Use
  Company Number: US-ROCHE-489129

PATIENT
  Age: 37 Year
  Sex: Female
  Weight: 103.9 kg

DRUGS (17)
  1. ROCALTROL [Suspect]
     Indication: CALCIUM METABOLISM DISORDER
     Route: 048
  2. ROCALTROL [Suspect]
     Route: 048
     Dates: start: 20070325
  3. OS-CAL [Concomitant]
     Route: 048
  4. UNSPECIFIED DRUG [Concomitant]
  5. ASPIRIN [Concomitant]
  6. BENICAR [Concomitant]
  7. DEMADEX [Concomitant]
  8. APRESOLINE [Concomitant]
     Dosage: REPORTED AS HYDRLAZINE HCL-GENERIC APRESOLINE
  9. LANTUS [Concomitant]
     Dosage: REPORTED AS 100UNITS/ML
  10. PROCRIT [Concomitant]
     Dosage: REPORTED AS EVERY 2 WEEKS
  11. SODIUM BICARBONATE [Concomitant]
  12. ZOFRAN [Concomitant]
     Dosage: REPORTED TAKEN AS NEEDED
  13. CLEOCIN HYDROCHLORIDE [Concomitant]
     Dosage: REPORTED AS 1% TO USE AS NEEDED.
  14. DULCOLAX [Concomitant]
     Dosage: TBEC AS DIRECTED, USE AS TOLERATED
  15. NOVOLIN R [Concomitant]
     Dosage: REPORTED AS 100UNIT/ML ON A SLIDING SCALE
  16. PHOSLO [Concomitant]
  17. RESTORIL [Concomitant]
     Dosage: REPORTED AS 1 AS NEEDED FOR SLEEP

REACTIONS (4)
  - BLOOD GLUCOSE INCREASED [None]
  - HYPERPHOSPHATAEMIA [None]
  - HYPOCALCAEMIA [None]
  - PITTING OEDEMA [None]
